FAERS Safety Report 9088854 (Version 2)
Quarter: 2013Q2

REPORT INFORMATION
  Report Type: Spontaneous
  Country: US (occurrence: US)
  Receive Date: 20130202
  Receipt Date: 20130402
  Transmission Date: 20140414
  Serious: No
  Sender: FDA-Public Use
  Company Number: US-TEVA-383325USA

PATIENT
  Age: 21 Year
  Sex: Female
  Weight: 52.21 kg

DRUGS (4)
  1. PLAN B ONE-STEP [Suspect]
     Indication: POST COITAL CONTRACEPTION
     Dosage: 1.5 MILLIGRAM DAILY;
     Route: 048
     Dates: start: 20130110, end: 20130110
  2. ZOLOFT [Concomitant]
     Indication: ANXIETY
     Route: 048
  3. TRI-SPRINTEC [Concomitant]
     Indication: ACNE
     Route: 048
  4. TRI-SPRINTEC [Concomitant]
     Indication: CONTRACEPTION

REACTIONS (1)
  - Metrorrhagia [Recovered/Resolved]
